FAERS Safety Report 9861945 (Version 1)
Quarter: 2014Q1

REPORT INFORMATION
  Report Type: Spontaneous
  Country: US (occurrence: None)
  Receive Date: 20140131
  Receipt Date: 20140131
  Transmission Date: 20141002
  Serious: Yes (Other)
  Sender: FDA-Public Use
  Company Number: None

PATIENT
  Age: 72 Year
  Sex: Female
  Weight: 73.48 kg

DRUGS (3)
  1. MARCAINE [Suspect]
     Indication: SPINAL ANAESTHESIA
     Dosage: 2ML ONCE SPINAL
     Route: 037
     Dates: start: 20140127, end: 20140127
  2. MIDADZOLAM [Concomitant]
  3. ONDANSETRON [Concomitant]

REACTIONS (2)
  - Drug effect incomplete [None]
  - Anaesthetic complication [None]
